FAERS Safety Report 7805146-3 (Version None)
Quarter: 2011Q4

REPORT INFORMATION
  Report Type: 
  Country: None (occurrence: None)
  Receive Date: 20111010
  Receipt Date: 20110927
  Transmission Date: 20120403
  Serious: Yes (Other)
  Sender: FDA-Public Use
  Company Number: PHHY2011JP82591

PATIENT
  Age: 23 Year
  Sex: Female

DRUGS (3)
  1. CYCLOSPORINE [Suspect]
     Indication: GLOMERULONEPHRITIS MEMBRANOPROLIFERATIVE
     Dosage: UNK UKN, UNK
     Dates: start: 19990101
  2. PREDNISOLONE [Concomitant]
     Indication: GLOMERULONEPHRITIS MEMBRANOPROLIFERATIVE
     Dosage: UNK UKN, UNK
     Route: 048
  3. METHYLPREDNISOLONE [Concomitant]
     Indication: GLOMERULONEPHRITIS MEMBRANOPROLIFERATIVE
     Dosage: UNK UKN, UNK

REACTIONS (4)
  - PROTEIN URINE PRESENT [None]
  - NEPHROPATHY [None]
  - RENAL DISORDER [None]
  - COMPLEMENT FACTOR DECREASED [None]
